FAERS Safety Report 6039275-4 (Version None)
Quarter: 2009Q1

REPORT INFORMATION
  Report Type: 
  Country: None (occurrence: None)
  Receive Date: 20090115
  Receipt Date: 20090107
  Transmission Date: 20090719
  Serious: Yes (Other)
  Sender: FDA-Public Use
  Company Number: PHEH2009US00633

PATIENT
  Sex: Male

DRUGS (8)
  1. AREDIA [Suspect]
     Indication: MULTIPLE MYELOMA
     Dosage: 90 MG, QMO
     Route: 042
     Dates: start: 20010601, end: 20021201
  2. ZOMETA [Suspect]
     Indication: MULTIPLE MYELOMA
     Dosage: 4 MG, QMO
     Route: 042
     Dates: start: 20030101, end: 20040201
  3. THALIDOMIDE [Concomitant]
  4. DECADRON                                /NET/ [Concomitant]
  5. INTERFERON ALFA [Concomitant]
  6. PROCRIT                            /00909301/ [Concomitant]
  7. CELEXA [Concomitant]
  8. ACYCLOVIR [Concomitant]

REACTIONS (3)
  - BONE DISORDER [None]
  - OSTEONECROSIS [None]
  - STEM CELL TRANSPLANT [None]
